FAERS Safety Report 4820737-X (Version None)
Quarter: 2005Q4

REPORT INFORMATION
  Report Type: 
  Country: None (occurrence: None)
  Receive Date: 20051103
  Receipt Date: 20051103
  Transmission Date: 20060501
  Serious: Yes (Life-Threatening, Hospitalization)
  Sender: FDA-Public Use
  Company Number: None

PATIENT
  Age: 43 Year
  Sex: Male
  Weight: 95.2554 kg

DRUGS (1)
  1. DEXFERRUM [Suspect]
     Indication: ANAEMIA
     Dosage: 25MG IV OVER 15MIN  X1   IV DRIP
     Route: 041
     Dates: start: 20051101, end: 20051101

REACTIONS (1)
  - RESPIRATORY ARREST [None]
